FAERS Safety Report 13011949 (Version 2)
Quarter: 2016Q4

REPORT INFORMATION
  Report Type: Report from Study
  Country: JP (occurrence: JP)
  Receive Date: 20161209
  Receipt Date: 20161215
  Transmission Date: 20170207
  Serious: Yes (Hospitalization, Other)
  Sender: FDA-Public Use
  Company Number: JP-AMGEN-JPNNI2016173902

PATIENT
  Age: 13 Year
  Sex: Male
  Weight: 37 kg

DRUGS (33)
  1. DARBEPOETIN ALFA [Suspect]
     Active Substance: DARBEPOETIN ALFA
     Indication: RENAL APLASIA
     Dosage: 30 MUG, QD
     Route: 042
     Dates: start: 20150223
  2. DARBEPOETIN ALFA [Suspect]
     Active Substance: DARBEPOETIN ALFA
     Dosage: 60 MUG, QD
     Route: 042
     Dates: start: 20160219
  3. PRECIPITATED CALCIUM CARBONATE [Concomitant]
     Active Substance: CALCIUM CARBONATE
     Indication: HYPERPARATHYROIDISM SECONDARY
     Dosage: UNK
     Route: 048
  4. CALONAL [Concomitant]
     Active Substance: ACETAMINOPHEN
     Dosage: UNK
     Route: 048
  5. DARBEPOETIN ALFA [Suspect]
     Active Substance: DARBEPOETIN ALFA
     Dosage: 60 MUG, QD
     Route: 042
     Dates: start: 20160119
  6. DARBEPOETIN ALFA [Suspect]
     Active Substance: DARBEPOETIN ALFA
     Dosage: 40 MUG, QD
     Route: 042
     Dates: start: 20150414
  7. DARBEPOETIN ALFA [Suspect]
     Active Substance: DARBEPOETIN ALFA
     Dosage: 40 MUG, QD
     Route: 042
     Dates: start: 20150626
  8. DARBEPOETIN ALFA [Suspect]
     Active Substance: DARBEPOETIN ALFA
     Dosage: 40 MUG, QD
     Route: 042
     Dates: start: 20150925
  9. ZYLORIC [Concomitant]
     Active Substance: ALLOPURINOL
     Indication: HYPERURICAEMIA
     Dosage: UNK
     Route: 048
  10. ALFAROL [Concomitant]
     Active Substance: ALFACALCIDOL
     Indication: HYPERPARATHYROIDISM SECONDARY
     Dosage: UNK
     Route: 048
  11. ACELIO [Concomitant]
     Active Substance: ACETAMINOPHEN
     Indication: RENAL APLASIA
     Dosage: UNK
     Route: 042
  12. MEARUBIK [Concomitant]
     Dosage: UNK
     Route: 058
  13. L CARTIN FF [Concomitant]
     Active Substance: LEVOCARNITINE
     Indication: RENAL APLASIA
     Dosage: UNK
     Route: 048
  14. KREMEZIN [Concomitant]
     Active Substance: ACTIVATED CHARCOAL
     Indication: AZOTAEMIA
     Dosage: UNK
     Route: 048
  15. STERICLON [Concomitant]
     Active Substance: CHLORHEXIDINE GLUCONATE
     Indication: RENAL APLASIA
     Dosage: UNK
     Route: 061
  16. MEYLON [Concomitant]
     Active Substance: SODIUM BICARBONATE
     Indication: RENAL APLASIA
     Dosage: UNK
     Route: 042
  17. ASVERIN (TIPEPIDINE HIBENZATE) [Concomitant]
     Active Substance: TIPEPIDINE HIBENZATE
     Dosage: UNK
     Route: 048
  18. HIRUDOID [Concomitant]
     Active Substance: GLYCOSAMINOGLYCANS
     Dosage: UNK
     Route: 061
  19. DARBEPOETIN ALFA [Suspect]
     Active Substance: DARBEPOETIN ALFA
     Dosage: 30 MUG, QD
     Route: 042
     Dates: start: 20150325
  20. KAYEXALATE [Concomitant]
     Active Substance: SODIUM POLYSTYRENE SULFONATE
     Indication: RENAL APLASIA
     Dosage: UNK
     Route: 048
  21. FENTANYL. [Concomitant]
     Active Substance: FENTANYL
     Indication: RENAL APLASIA
     Dosage: UNK
     Route: 042
  22. BIMMUGEN [Concomitant]
     Dosage: UNK
     Route: 065
  23. FREEZE-DRIED LIVE ATTENUATED MEASLES AND RUBE [Concomitant]
     Dosage: UNK
     Route: 058
  24. WARKMIN [Concomitant]
     Active Substance: ALFACALCIDOL
     Indication: HYPERPARATHYROIDISM SECONDARY
     Dosage: UNK
     Route: 048
  25. OLIVE OIL [Concomitant]
     Active Substance: OLIVE OIL
     Indication: RENAL APLASIA
     Dosage: UNK
     Route: 061
  26. CEFAZOLIN NA [Concomitant]
     Indication: RENAL APLASIA
     Dosage: UNK
     Route: 042
  27. ULTIVA [Concomitant]
     Active Substance: REMIFENTANIL HYDROCHLORIDE
     Indication: RENAL APLASIA
     Dosage: UNK
     Route: 042
  28. ALESION [Concomitant]
     Active Substance: EPINASTINE HYDROCHLORIDE
     Dosage: UNK
     Route: 048
  29. DARBEPOETIN ALFA [Suspect]
     Active Substance: DARBEPOETIN ALFA
     Dosage: 40 MUG, QD
     Route: 042
     Dates: start: 20150724
  30. DARBEPOETIN ALFA [Suspect]
     Active Substance: DARBEPOETIN ALFA
     Dosage: 60 MUG, QD
     Route: 042
     Dates: start: 20151030
  31. DARBEPOETIN ALFA [Suspect]
     Active Substance: DARBEPOETIN ALFA
     Dosage: 60 MUG, QD
     Route: 042
     Dates: start: 20151224
  32. LASIX [Concomitant]
     Active Substance: FUROSEMIDE
     Indication: RENAL APLASIA
     Dosage: UNK
     Route: 048
  33. MUCODYNE [Concomitant]
     Active Substance: CARBOCYSTEINE

REACTIONS (6)
  - Device related infection [Recovered/Resolved]
  - Cardiac failure [Recovered/Resolved]
  - Thyroid function test abnormal [Recovered/Resolved]
  - Urinary tract infection [Recovered/Resolved]
  - C-reactive protein increased [Recovered/Resolved]
  - Eczema [Unknown]

NARRATIVE: CASE EVENT DATE: 20150225
